FAERS Safety Report 10723560 (Version 1)
Quarter: 2015Q1

REPORT INFORMATION
  Report Type: Spontaneous
  Country: US (occurrence: None)
  Receive Date: 20150116
  Receipt Date: 20150116
  Transmission Date: 20150721
  Serious: Yes (Death)
  Sender: FDA-Public Use
  Company Number: None

PATIENT
  Age: 59 Year
  Sex: Male

DRUGS (1)
  1. HARVONI [Suspect]
     Active Substance: LEDIPASVIR\SOFOSBUVIR
     Dosage: 1-2-15 ONLY
     Route: 048
     Dates: start: 20150102

REACTIONS (3)
  - Cardiac arrest [None]
  - Respiratory failure [None]
  - Seizure [None]

NARRATIVE: CASE EVENT DATE: 20150102
